FAERS Safety Report 24941182 (Version 1)
Quarter: 2025Q1

REPORT INFORMATION
  Report Type: Spontaneous
  Country: US (occurrence: US)
  Receive Date: 20250207
  Receipt Date: 20250207
  Transmission Date: 20250408
  Serious: No
  Sender: AUROBINDO
  Company Number: US-AUROBINDO-AUR-APL-2024-053863

PATIENT
  Age: 6 Year
  Sex: Female
  Weight: 40.823 kg

DRUGS (1)
  1. AMOXICILLIN AND CLAVULANATE POTASSIUM [Suspect]
     Active Substance: AMOXICILLIN\CLAVULANATE POTASSIUM
     Indication: Product used for unknown indication
     Route: 065

REACTIONS (5)
  - Product administration error [Unknown]
  - Product use complaint [Unknown]
  - Product taste abnormal [Unknown]
  - Product odour abnormal [Unknown]
  - Product colour issue [Unknown]
